FAERS Safety Report 18123699 (Version 2)
Quarter: 2021Q1

REPORT INFORMATION
  Report Type: Report from Study
  Country: US (occurrence: US)
  Receive Date: 20200807
  Receipt Date: 20210304
  Transmission Date: 20210419
  Serious: No
  Sender: FDA-Public Use
  Company Number: US-AEGERION PHARMACEUTICAL, INC-AEGR004912

PATIENT
  Age: 15 Year
  Sex: Female

DRUGS (6)
  1. METRELEPTIN [Suspect]
     Active Substance: METRELEPTIN
     Dosage: 3.5 MG, EVERY 12 HOURS
     Dates: start: 20200707
  2. LOVAZA [Concomitant]
     Active Substance: OMEGA-3-ACID ETHYL ESTERS
     Indication: HYPERTRIGLYCERIDAEMIA
     Dosage: 1 G, QD
     Route: 048
     Dates: start: 2019
  3. METRELEPTIN [Suspect]
     Active Substance: METRELEPTIN
     Indication: CONGENITAL GENERALISED LIPODYSTROPHY
     Dosage: 2.5 MG, BID
     Dates: start: 20190705, end: 20200130
  4. METRELEPTIN [Suspect]
     Active Substance: METRELEPTIN
     Dosage: GRADUAL INCREASE OF 0.02 MLS EVERY 2 WEEKS AS TOLERATED
     Dates: start: 20200131
  5. HUMALOG MIX75/25 [Concomitant]
     Active Substance: INSULIN LISPRO
     Indication: DIABETES MELLITUS
     Dosage: 90 UNITS, BID
     Route: 058
     Dates: start: 2019
  6. NAPROSYN [Concomitant]
     Active Substance: NAPROXEN
     Indication: PAIN IN EXTREMITY
     Dosage: 10 ML, BID
     Route: 048

REACTIONS (2)
  - Headache [Recovered/Resolved]
  - Synovial cyst [Not Recovered/Not Resolved]

NARRATIVE: CASE EVENT DATE: 202002
